FAERS Safety Report 10488708 (Version 2)
Quarter: 2014Q4

REPORT INFORMATION
  Report Type: Report from Study
  Country: US (occurrence: US)
  Receive Date: 20141002
  Receipt Date: 20141002
  Transmission Date: 20150528
  Serious: Yes (Death, Hospitalization)
  Sender: FDA-Public Use
  Company Number: US-ROCHE-1460065

PATIENT
  Age: 59 Year
  Sex: Male
  Weight: 129.84 kg

DRUGS (5)
  1. CARBOPLATIN. [Suspect]
     Active Substance: CARBOPLATIN
     Indication: METASTATIC MALIGNANT MELANOMA
     Dosage: LAST ADMINISTERED DATE 14/AUG/2014
     Route: 042
     Dates: start: 20140319
  2. PACLITAXEL. [Suspect]
     Active Substance: PACLITAXEL
     Indication: METASTATIC MALIGNANT MELANOMA
     Dosage: LAST ADMINISTERED DATE 14/AUG/2014, PATIENT RECEIVED CYCLE 6 ON 28/AUG/2014
     Route: 042
     Dates: start: 20140319
  3. BEVACIZUMAB [Suspect]
     Active Substance: BEVACIZUMAB
     Indication: METASTATIC MALIGNANT MELANOMA
     Dosage: LAST ADMINISTERED DATE 14/AUG/2014, PATIENT RECEIVED CYCLE 6 ON 28/AUG/2014,
     Route: 042
     Dates: start: 20140319
  4. YERVOY [Suspect]
     Active Substance: IPILIMUMAB
     Indication: PRODUCT USED FOR UNKNOWN INDICATION
     Route: 042
  5. EVEROLIMUS [Suspect]
     Active Substance: EVEROLIMUS
     Indication: METASTATIC MALIGNANT MELANOMA
     Dosage: LAST ADMINISTERED DATE 01/SEP/2014
     Route: 048
     Dates: start: 20140319

REACTIONS (4)
  - Muscular weakness [Recovered/Resolved]
  - Cerebrovascular accident [Fatal]
  - Urinary tract infection [Recovered/Resolved]
  - Lymphoedema [Recovered/Resolved]

NARRATIVE: CASE EVENT DATE: 20140821
